FAERS Safety Report 5562737-0 (Version None)
Quarter: 2007Q4

REPORT INFORMATION
  Report Type: 
  Country: None (occurrence: None)
  Receive Date: 20071217
  Receipt Date: 20071213
  Transmission Date: 20080405
  Serious: Yes (Death)
  Sender: FDA-Public Use
  Company Number: PHFR2007GB03619

PATIENT
  Age: 57 Year
  Sex: Male

DRUGS (1)
  1. CLOZARIL [Suspect]
     Indication: SCHIZOPHRENIA
     Route: 048
     Dates: start: 20020522

REACTIONS (2)
  - HEPATIC NEOPLASM MALIGNANT [None]
  - RENAL CELL CARCINOMA STAGE UNSPECIFIED [None]
